FAERS Safety Report 24390686 (Version 3)
Quarter: 2024Q4

REPORT INFORMATION
  Report Type: Report from Study
  Country: US (occurrence: US)
  Receive Date: 20241003
  Receipt Date: 20241014
  Transmission Date: 20250115
  Serious: Yes (Other)
  Sender: ABBVIE
  Company Number: US-ABBVIE-5944905

PATIENT
  Age: 85 Year
  Sex: Female

DRUGS (3)
  1. DUOPA [Suspect]
     Active Substance: CARBIDOPA\LEVODOPA
     Indication: Product used for unknown indication
     Route: 050
     Dates: start: 20190619, end: 20240626
  2. DUOPA [Suspect]
     Active Substance: CARBIDOPA\LEVODOPA
     Route: 050
     Dates: end: 20190921
  3. DUOPA [Suspect]
     Active Substance: CARBIDOPA\LEVODOPA
     Route: 050

REACTIONS (10)
  - Catatonia [Unknown]
  - Dysphonia [Unknown]
  - Weight decreased [Unknown]
  - Dyskinesia [Unknown]
  - Dry mouth [Unknown]
  - Headache [Unknown]
  - Constipation [Unknown]
  - Impaired quality of life [Unknown]
  - Device dislocation [Unknown]
  - Decreased appetite [Unknown]

NARRATIVE: CASE EVENT DATE: 20240921
